FAERS Safety Report 6666865-8 (Version None)
Quarter: 2010Q2

REPORT INFORMATION
  Report Type: 
  Country: None (occurrence: None)
  Receive Date: 20100401
  Receipt Date: 20100401
  Transmission Date: 20101027
  Serious: Yes (Death)
  Sender: FDA-Public Use
  Company Number: None

PATIENT
  Age: 47 Year
  Sex: Male

DRUGS (9)
  1. REVLIMID [Suspect]
     Indication: MULTIPLE MYELOMA
     Dosage: 10MG DAILY X21D/28D DAILY ORALLY
     Route: 048
     Dates: start: 20090904, end: 20100328
  2. PROCRIT [Concomitant]
  3. AREDIA [Concomitant]
  4. METHADONE HCL [Concomitant]
  5. FENTANYL [Concomitant]
  6. CALCITRIOL [Concomitant]
  7. SIMVASTATIN [Concomitant]
  8. ADVAIR DISKUS 100/50 [Concomitant]
  9. ALBUTEROL [Concomitant]

REACTIONS (1)
  - UPPER RESPIRATORY TRACT INFECTION [None]
